FAERS Safety Report 8005650-1 (Version None)
Quarter: 2011Q4

REPORT INFORMATION
  Report Type: 
  Country: None (occurrence: None)
  Receive Date: 20111223
  Receipt Date: 20111214
  Transmission Date: 20120403
  Serious: Yes (Hospitalization)
  Sender: FDA-Public Use
  Company Number: CA-JNJFOC-20111208230

PATIENT
  Sex: Female
  Weight: 72 kg

DRUGS (3)
  1. REMICADE [Suspect]
     Indication: CROHN'S DISEASE
     Dosage: 300 MG  Q 8
     Route: 042
     Dates: start: 20100801
  2. PREDNISONE TAB [Concomitant]
     Route: 048
  3. IMURAN [Concomitant]
     Route: 048

REACTIONS (1)
  - OESOPHAGEAL PAIN [None]
